FAERS Safety Report 5088342-0 (Version None)
Quarter: 2006Q3

REPORT INFORMATION
  Report Type: 
  Country: None (occurrence: None)
  Receive Date: 20060821
  Receipt Date: 20060811
  Transmission Date: 20061208
  Serious: Yes (Death, Life-Threatening, Hospitalization, Other)
  Sender: FDA-Public Use
  Company Number: 29652

PATIENT
  Age: 51 Year
  Sex: Male

DRUGS (1)
  1. CYTARABINE [Suspect]
     Indication: LEUKAEMIA
     Dosage: IV
     Route: 042

REACTIONS (5)
  - DISEASE PROGRESSION [None]
  - DYSPNOEA [None]
  - HEPATIC FAILURE [None]
  - OXYGEN SATURATION DECREASED [None]
  - PLEURAL EFFUSION [None]
